FAERS Safety Report 8033742-X (Version None)
Quarter: 2012Q1

REPORT INFORMATION
  Report Type: 
  Country: None (occurrence: None)
  Receive Date: 20120110
  Receipt Date: 20120105
  Transmission Date: 20120608
  Serious: Yes (Life-Threatening)
  Sender: FDA-Public Use
  Company Number: BE-GLAXOSMITHKLINE-B0774379A

PATIENT
  Sex: Female

DRUGS (2)
  1. ESCITALOPRAM OXALATE [Suspect]
     Indication: DEPRESSION
     Route: 065
     Dates: end: 20110901
  2. WELLBUTRIN [Suspect]
     Indication: DEPRESSION
     Route: 065
     Dates: start: 20110101

REACTIONS (4)
  - BULIMIA NERVOSA [None]
  - SOMNOLENCE [None]
  - DEPRESSION [None]
  - FATIGUE [None]
